FAERS Safety Report 4767867-9 (Version None)
Quarter: 2005Q3

REPORT INFORMATION
  Report Type: 
  Country: None (occurrence: None)
  Receive Date: 20050912
  Receipt Date: 20050902
  Transmission Date: 20060218
  Serious: Yes (Hospitalization, Other)
  Sender: FDA-Public Use
  Company Number: KII-2005-0018468

PATIENT
  Age: 17 Year
  Sex: Male

DRUGS (2)
  1. OXYCONTIN [Suspect]
     Indication: INTENTIONAL MISUSE
  2. TETRAHYDROCANNABINOL(TETRAHYDROCANNABINOL) [Suspect]

REACTIONS (11)
  - DEPRESSED LEVEL OF CONSCIOUSNESS [None]
  - FEELING COLD [None]
  - OVERDOSE [None]
  - OXYGEN SATURATION DECREASED [None]
  - PALLOR [None]
  - POLYSUBSTANCE ABUSE [None]
  - PULMONARY OEDEMA [None]
  - RALES [None]
  - SOMNOLENCE [None]
  - TROPONIN INCREASED [None]
  - WHEEZING [None]
